FAERS Safety Report 17321895 (Version 1)
Quarter: 2020Q1

REPORT INFORMATION
  Report Type: Other
  Country: US (occurrence: US)
  Receive Date: 20200127
  Receipt Date: 20200127
  Transmission Date: 20200409
  Serious: Yes (Hospitalization)
  Sender: FDA-Public Use
  Company Number: US-ACORDA-ACO_159471_2019

PATIENT
  Sex: Male

DRUGS (8)
  1. AMPYRA [Suspect]
     Active Substance: DALFAMPRIDINE
     Indication: GAIT DISTURBANCE
  2. DALFAMPRIDINE. [Suspect]
     Active Substance: DALFAMPRIDINE
     Indication: GAIT DISTURBANCE
  3. DALFAMPRIDINE. [Suspect]
     Active Substance: DALFAMPRIDINE
     Indication: MULTIPLE SCLEROSIS
  4. DALFAMPRIDINE. [Suspect]
     Active Substance: DALFAMPRIDINE
     Indication: NERVOUS SYSTEM DISORDER
     Dosage: 10 MG, BID
     Route: 048
     Dates: start: 2018
  5. DALFAMPRIDINE. [Suspect]
     Active Substance: DALFAMPRIDINE
     Indication: SENSORY DISTURBANCE
  6. AMPYRA [Suspect]
     Active Substance: DALFAMPRIDINE
     Indication: NERVOUS SYSTEM DISORDER
     Dosage: 10 MILLIGRAM, BID
     Route: 048
     Dates: start: 20180203, end: 2018
  7. AMPYRA [Suspect]
     Active Substance: DALFAMPRIDINE
     Indication: SENSORY DISTURBANCE
  8. AMPYRA [Suspect]
     Active Substance: DALFAMPRIDINE
     Indication: MULTIPLE SCLEROSIS

REACTIONS (7)
  - Nausea [Not Recovered/Not Resolved]
  - Multiple sclerosis relapse [Recovered/Resolved]
  - Palpitations [Not Recovered/Not Resolved]
  - Product use in unapproved indication [Unknown]
  - Dysarthria [Not Recovered/Not Resolved]
  - Peripheral swelling [Not Recovered/Not Resolved]
  - Gait disturbance [Not Recovered/Not Resolved]
